FAERS Safety Report 6008896-7 (Version None)
Quarter: 2008Q4

REPORT INFORMATION
  Report Type: 
  Country: None (occurrence: None)
  Receive Date: 20081217
  Receipt Date: 20081209
  Transmission Date: 20090506
  Serious: Yes (Death)
  Sender: FDA-Public Use
  Company Number: US-GENENTECH-269158

PATIENT
  Age: 65 Year
  Sex: Male

DRUGS (13)
  1. RITUXAN [Suspect]
     Indication: NON-HODGKIN'S LYMPHOMA
     Dosage: UNK
     Dates: start: 19980701
  2. RITUXAN [Suspect]
     Dosage: UNK
     Dates: start: 20020701
  3. RITUXAN [Suspect]
     Dosage: UNK
     Dates: start: 20040110, end: 20040610
  4. RITUXAN [Suspect]
     Dosage: UNK
     Dates: start: 20040610, end: 20050321
  5. CYCLOPHOSPHAMIDE [Suspect]
     Indication: NON-HODGKIN'S LYMPHOMA
     Dosage: UNK
     Dates: start: 19980701
  6. CYCLOPHOSPHAMIDE [Suspect]
     Dosage: UNK
     Dates: start: 20020701
  7. DOXORUBICIN HCL [Suspect]
     Indication: NON-HODGKIN'S LYMPHOMA
     Dosage: UNK
     Dates: start: 19980701
  8. DOXORUBICIN HCL [Suspect]
     Dosage: UNK
     Dates: start: 20020701
  9. VINCRISTINE [Suspect]
     Indication: NON-HODGKIN'S LYMPHOMA
     Dosage: UNK
     Dates: start: 19980701
  10. VINCRISTINE [Suspect]
     Dosage: UNK
     Dates: start: 20020701
  11. PREDNISONE TAB [Suspect]
     Indication: NON-HODGKIN'S LYMPHOMA
     Dosage: UNK
     Dates: start: 19980701
  12. PREDNISONE TAB [Suspect]
     Dosage: UNK
     Dates: start: 20020701
  13. FLUDARABINE PHOSPHATE [Suspect]
     Indication: NON-HODGKIN'S LYMPHOMA
     Dosage: UNK
     Dates: start: 20040110, end: 20040610

REACTIONS (1)
  - PROGRESSIVE MULTIFOCAL LEUKOENCEPHALOPATHY [None]
